FAERS Safety Report 15075772 (Version 1)
Quarter: 2018Q2

REPORT INFORMATION
  Report Type: Spontaneous
  Country: JP (occurrence: JP)
  Receive Date: 20180627
  Receipt Date: 20180627
  Transmission Date: 20180711
  Serious: Yes (Hospitalization)
  Sender: FDA-Public Use
  Company Number: JP-JNJFOC-20180634541

PATIENT
  Age: 75 Year
  Sex: Female
  Weight: 65 kg

DRUGS (12)
  1. GLIMICRON [Concomitant]
     Active Substance: GLICLAZIDE
     Indication: TYPE 2 DIABETES MELLITUS
     Route: 048
     Dates: start: 20110705
  2. PLETAAL [Concomitant]
     Active Substance: CILOSTAZOL
     Route: 048
     Dates: start: 20110705
  3. ULTIBRO [Concomitant]
     Active Substance: GLYCOPYRRONIUM\INDACATEROL
     Route: 055
     Dates: start: 20120116
  4. METGLUCO [Concomitant]
     Active Substance: METFORMIN HYDROCHLORIDE
     Indication: TYPE 2 DIABETES MELLITUS
     Route: 048
     Dates: start: 20110705
  5. NIKORANMART [Concomitant]
     Active Substance: NICORANDIL
     Route: 048
     Dates: start: 20150721
  6. SENNOSIDE [Concomitant]
     Active Substance: SENNOSIDES
     Route: 048
     Dates: start: 20110705
  7. CANAGLU [Suspect]
     Active Substance: CANAGLIFLOZIN
     Indication: TYPE 2 DIABETES MELLITUS
     Route: 048
     Dates: start: 20151027
  8. JANUVIA [Concomitant]
     Active Substance: SITAGLIPTIN PHOSPHATE
     Indication: TYPE 2 DIABETES MELLITUS
     Route: 048
     Dates: start: 20110705
  9. LOSARHYD [Concomitant]
     Active Substance: HYDROCHLOROTHIAZIDE\LOSARTAN POTASSIUM
     Route: 048
     Dates: start: 20110705
  10. METOPROLOL TARTRATE. [Concomitant]
     Active Substance: METOPROLOL TARTRATE
     Route: 048
     Dates: start: 20111017
  11. ATORVASTATIN [Concomitant]
     Active Substance: ATORVASTATIN
     Route: 048
     Dates: start: 20110705
  12. VOGLIBOSE [Concomitant]
     Active Substance: VOGLIBOSE
     Indication: TYPE 2 DIABETES MELLITUS
     Route: 048
     Dates: start: 20110705

REACTIONS (1)
  - Chronic obstructive pulmonary disease [Recovering/Resolving]

NARRATIVE: CASE EVENT DATE: 20160426
